FAERS Safety Report 11037474 (Version 1)
Quarter: 2015Q2

REPORT INFORMATION
  Report Type: Spontaneous
  Country: US (occurrence: None)
  Receive Date: 20150415
  Receipt Date: 20150415
  Transmission Date: 20150821
  Serious: No
  Sender: FDA-Public Use
  Company Number: None

PATIENT
  Age: 39 Year
  Sex: Female
  Weight: 63.05 kg

DRUGS (1)
  1. RESTASIS [Suspect]
     Active Substance: CYCLOSPORINE
     Indication: DRY EYE
     Dosage: 1 DROP BOTH EYES  TWICE DAILY  INTO THE EYE
     Dates: start: 20150406, end: 20150413

REACTIONS (6)
  - Eye pain [None]
  - Pruritus [None]
  - Pain [None]
  - Dry eye [None]
  - Sensation of foreign body [None]
  - Insomnia [None]

NARRATIVE: CASE EVENT DATE: 20150414
